FAERS Safety Report 11408775 (Version 1)
Quarter: 2015Q3

REPORT INFORMATION
  Report Type: Spontaneous
  Country: KR (occurrence: KR)
  Receive Date: 20150823
  Receipt Date: 20150823
  Transmission Date: 20151125
  Serious: Yes (Other)
  Sender: FDA-Public Use
  Company Number: KR-009507513-1508KOR004977

PATIENT
  Sex: Male

DRUGS (1)
  1. PEGINTRON [Suspect]
     Active Substance: PEGINTERFERON ALFA-2B
     Indication: HEPATITIS C
     Dosage: 100 MICROGRAM, UNK
     Route: 058
     Dates: start: 201404

REACTIONS (8)
  - Depression [Unknown]
  - Drug ineffective [Unknown]
  - Paraesthesia [Unknown]
  - Monoplegia [Unknown]
  - Listless [Unknown]
  - Weight decreased [Unknown]
  - Muscular weakness [Unknown]
  - Myalgia [Unknown]

NARRATIVE: CASE EVENT DATE: 201404
